FAERS Safety Report 25437254 (Version 1)
Quarter: 2025Q2

REPORT INFORMATION
  Report Type: Spontaneous
  Country: US (occurrence: US)
  Receive Date: 20250616
  Receipt Date: 20250616
  Transmission Date: 20250717
  Serious: Yes (Other)
  Sender: APNAR PHARMA
  Company Number: US-Apnar-000207

PATIENT
  Age: 34 Year
  Sex: Female

DRUGS (6)
  1. BUPROPION HYDROCHLORIDE [Interacting]
     Active Substance: BUPROPION HYDROCHLORIDE
     Indication: Anxiety
  2. FLUOXETINE HYDROCHLORIDE [Interacting]
     Active Substance: FLUOXETINE HYDROCHLORIDE
     Indication: Anxiety
  3. PROPOFOL [Interacting]
     Active Substance: PROPOFOL
     Indication: Sedative therapy
     Route: 042
  4. BUPROPION HYDROCHLORIDE [Interacting]
     Active Substance: BUPROPION HYDROCHLORIDE
     Indication: Asthma
  5. FLUOXETINE HYDROCHLORIDE [Interacting]
     Active Substance: FLUOXETINE HYDROCHLORIDE
     Indication: Asthma
  6. PROPOFOL [Interacting]
     Active Substance: PROPOFOL
     Indication: Sedative therapy

REACTIONS (4)
  - Serotonin syndrome [Recovered/Resolved]
  - Drug interaction [Unknown]
  - Antidepressant drug level increased [Unknown]
  - Off label use [Unknown]
